FAERS Safety Report 9754934 (Version 1)
Quarter: 2013Q4

REPORT INFORMATION
  Report Type: Spontaneous
  Country: US (occurrence: US)
  Receive Date: 20131213
  Receipt Date: 20131213
  Transmission Date: 20140711
  Serious: No
  Sender: FDA-Public Use
  Company Number: US-GLAXOSMITHKLINE-A1008913A

PATIENT
  Age: 18 Year
  Sex: 0

DRUGS (1)
  1. NICODERM CQ 21MG [Suspect]
     Indication: SMOKING CESSATION THERAPY
     Dates: start: 20130117, end: 20130118

REACTIONS (4)
  - Application site irritation [Recovered/Resolved]
  - Application site erythema [Unknown]
  - Nausea [Unknown]
  - Vomiting [Unknown]
